FAERS Safety Report 10803781 (Version 2)
Quarter: 2015Q1

REPORT INFORMATION
  Report Type: Report from Study
  Country: US (occurrence: US)
  Receive Date: 20150217
  Receipt Date: 20150224
  Transmission Date: 20150721
  Serious: Yes (Other)
  Sender: FDA-Public Use
  Company Number: US-GILEAD-2015-0132471

PATIENT
  Age: 77 Year
  Sex: Female

DRUGS (1)
  1. IDELALISIB [Suspect]
     Active Substance: IDELALISIB
     Indication: PRODUCT USED FOR UNKNOWN INDICATION
     Dosage: 150 MG, UNK
     Route: 048
     Dates: start: 20141118

REACTIONS (7)
  - Fatigue [Not Recovered/Not Resolved]
  - Drug ineffective [Unknown]
  - Chills [Recovered/Resolved]
  - Tremor [Recovered/Resolved]
  - Headache [Recovered/Resolved]
  - Night sweats [Recovered/Resolved]
  - White blood cell count increased [Unknown]

NARRATIVE: CASE EVENT DATE: 20141118
